FAERS Safety Report 10101425 (Version 1)
Quarter: 2014Q2

REPORT INFORMATION
  Report Type: Spontaneous
  Country: US (occurrence: None)
  Receive Date: 20140423
  Receipt Date: 20140423
  Transmission Date: 20141212
  Serious: No
  Sender: FDA-Public Use
  Company Number: None

PATIENT
  Age: 62 Year
  Sex: Male
  Weight: 92.99 kg

DRUGS (1)
  1. STRIANT [Suspect]
     Indication: BLOOD TESTOSTERONE DECREASED
     Dosage: ONE TWICE DAILY BUCCALY
     Route: 002
     Dates: start: 20140323, end: 20140323

REACTIONS (2)
  - Device malfunction [None]
  - Drug ineffective [None]
